FAERS Safety Report 6608853-3 (Version None)
Quarter: 2010Q1

REPORT INFORMATION
  Report Type: 
  Country: None (occurrence: None)
  Receive Date: 20100301
  Receipt Date: 20100217
  Transmission Date: 20100710
  Serious: Yes (Other)
  Sender: FDA-Public Use
  Company Number: US-BAYER-201017087GPV

PATIENT
  Age: 41 Year
  Sex: Male

DRUGS (1)
  1. ASPIRIN [Suspect]
     Indication: FATIGUE

REACTIONS (5)
  - ABDOMINAL PAIN [None]
  - ANAPHYLACTIC REACTION [None]
  - DIZZINESS [None]
  - LOSS OF CONSCIOUSNESS [None]
  - MALAISE [None]
